FAERS Safety Report 10850989 (Version 1)
Quarter: 2015Q1

REPORT INFORMATION
  Report Type: Spontaneous
  Country: US (occurrence: US)
  Receive Date: 20150222
  Receipt Date: 20150222
  Transmission Date: 20150721
  Serious: Yes (Hospitalization, Other)
  Sender: FDA-Public Use
  Company Number: US-ALLERGAN-1401805US

PATIENT
  Age: 44 Year
  Sex: Female

DRUGS (2)
  1. BOTOX [Suspect]
     Active Substance: ONABOTULINUMTOXINA
     Indication: SKIN WRINKLING
  2. BOTOX [Suspect]
     Active Substance: ONABOTULINUMTOXINA
     Indication: SKIN WRINKLING
     Dosage: UNK, SINGLE
     Route: 030
     Dates: start: 20130509, end: 20130509

REACTIONS (8)
  - Paraesthesia [Unknown]
  - Tachycardia [Unknown]
  - Aphasia [Unknown]
  - Diarrhoea [Unknown]
  - Vision blurred [Unknown]
  - Botulism [Unknown]
  - Dyspnoea [Unknown]
  - Facial paresis [Not Recovered/Not Resolved]
